FAERS Safety Report 19112384 (Version 1)
Quarter: 2021Q2

REPORT INFORMATION
  Report Type: Spontaneous
  Country: US (occurrence: US)
  Receive Date: 20210409
  Receipt Date: 20210409
  Transmission Date: 20210717
  Serious: No
  Sender: FDA-Public Use
  Company Number: None

PATIENT
  Age: 9 Year
  Sex: Male
  Weight: 27.8 kg

DRUGS (2)
  1. NAXITAMAB [Suspect]
     Active Substance: NAXITAMAB
     Indication: NEUROBLASTOMA
     Dosage: ?          OTHER FREQUENCY:3X WEEKLY Q4 WEEKS;?
     Route: 041
     Dates: start: 20210405
  2. NAXITAMAB [Concomitant]
     Active Substance: NAXITAMAB
     Dates: start: 20210405

REACTIONS (4)
  - Infusion related reaction [None]
  - Hypotension [None]
  - Pain [None]
  - Urticaria [None]

NARRATIVE: CASE EVENT DATE: 20210405
